FAERS Safety Report 19056970 (Version 1)
Quarter: 2021Q1

REPORT INFORMATION
  Report Type: Report from Study
  Country: IT (occurrence: IT)
  Receive Date: 20210325
  Receipt Date: 20210325
  Transmission Date: 20210420
  Serious: Yes (Hospitalization)
  Sender: FDA-Public Use
  Company Number: IT-PFIZER INC-2021302525

PATIENT
  Age: 72 Year
  Sex: Female
  Weight: 95 kg

DRUGS (2)
  1. CISPLATIN. [Suspect]
     Active Substance: CISPLATIN
     Indication: BLADDER CANCER
     Dosage: 70 UG/M2, CYCLIC
     Route: 042
     Dates: start: 20201230, end: 20210218
  2. GEMCITABINE HYDROCHLORIDE. [Suspect]
     Active Substance: GEMCITABINE HYDROCHLORIDE
     Indication: BLADDER CANCER
     Dosage: 1000 UG/M2, CYCLIC
     Route: 042
     Dates: start: 20201230, end: 20210218

REACTIONS (2)
  - Peau d^orange [Unknown]
  - Oedema [Unknown]

NARRATIVE: CASE EVENT DATE: 20210302
